FAERS Safety Report 10350969 (Version 5)
Quarter: 2014Q4

REPORT INFORMATION
  Report Type: Spontaneous
  Country: JP (occurrence: JP)
  Receive Date: 20140730
  Receipt Date: 20141125
  Transmission Date: 20150528
  Serious: Yes (Other)
  Sender: FDA-Public Use
  Company Number: JP-SA-2014SA102198

PATIENT
  Age: 49 Year
  Sex: Female

DRUGS (10)
  1. MYSLEE [Suspect]
     Active Substance: ZOLPIDEM TARTRATE
     Indication: INSOMNIA
     Dosage: MYSLEE (ZOLPIDEM) TABLET, 5 MG
     Route: 048
     Dates: start: 20140304, end: 20140610
  2. CIMZIA [Suspect]
     Active Substance: CERTOLIZUMAB PEGOL
     Indication: RHEUMATOID ARTHRITIS
     Route: 058
     Dates: start: 20140222, end: 20140426
  3. XYZAL [Concomitant]
     Active Substance: LEVOCETIRIZINE DIHYDROCHLORIDE
     Dates: start: 20140322, end: 20140510
  4. CIMZIA [Suspect]
     Active Substance: CERTOLIZUMAB PEGOL
     Indication: RHEUMATOID ARTHRITIS
     Route: 058
     Dates: start: 20140517, end: 20140517
  5. EMPYNASE [Concomitant]
     Active Substance: PANCRELIPASE
     Dates: start: 20140426, end: 20140426
  6. ENBREL [Concomitant]
     Active Substance: ETANERCEPT
     Dates: start: 20090107, end: 20130708
  7. MIYA-BM [Concomitant]
     Active Substance: CLOSTRIDIUM BUTYRICUM SPORES STRAIN M-55
     Dates: start: 20130928, end: 20140610
  8. PARIET [Concomitant]
     Active Substance: RABEPRAZOLE SODIUM
     Route: 048
     Dates: start: 20130928, end: 20140610
  9. SINGULAIR [Concomitant]
     Active Substance: MONTELUKAST SODIUM
     Route: 048
     Dates: start: 20130928, end: 20140614
  10. NEUQUINON [Concomitant]
     Active Substance: UBIDECARENONE
     Route: 048
     Dates: start: 20130928, end: 20140610

REACTIONS (1)
  - Henoch-Schonlein purpura [Not Recovered/Not Resolved]

NARRATIVE: CASE EVENT DATE: 20140508
